FAERS Safety Report 16978633 (Version 2)
Quarter: 2019Q4

REPORT INFORMATION
  Report Type: Spontaneous
  Country: DE (occurrence: CH)
  Receive Date: 20191031
  Receipt Date: 20191105
  Transmission Date: 20200122
  Serious: Yes (Other)
  Sender: FDA-Public Use
  Company Number: DE-JNJFOC-20191042202

PATIENT
  Age: 76 Year
  Sex: Male

DRUGS (15)
  1. CANDESARTAN. [Concomitant]
     Active Substance: CANDESARTAN
     Dosage: 16 MG, QD, 1-0-0-0
  2. EMSER [Concomitant]
     Dosage: 2.5 G, PRN
     Route: 045
  3. DEXPANTHENOL;SODIUM CHLORIDE [Concomitant]
     Dosage: 20 MG, PRN
  4. SPIROCORT [Concomitant]
     Active Substance: BUDESONIDE
     Indication: IMMUNOSUPPRESSION
  5. PREDNISOLONE. [Concomitant]
     Active Substance: PREDNISOLONE
     Dosage: 7.5 UNK
     Dates: start: 20190520
  6. METOJECT [Concomitant]
     Active Substance: METHOTREXATE SODIUM
     Dosage: 20MG/0.4ML ON FRIDAY, 1-0-0-0
     Route: 042
     Dates: start: 2014
  7. BACTROBAN [Concomitant]
     Active Substance: MUPIROCIN\MUPIROCIN CALCIUM
  8. PREDNISOLONE. [Concomitant]
     Active Substance: PREDNISOLONE
     Dosage: 7.5 UNK
     Dates: start: 201901, end: 201902
  9. RIVAROXABAN [Suspect]
     Active Substance: RIVAROXABAN
     Indication: PRODUCT USED FOR UNKNOWN INDICATION
     Dosage: 20 MG, QD, 1-0-0-0
     Route: 048
     Dates: start: 20190116
  10. ACIDUM FOLICUM [Concomitant]
     Active Substance: FOLIC ACID
     Dosage: 5 MG, OW ON FRIDAY, 0-0-1-0
  11. PREDNISOLONE. [Concomitant]
     Active Substance: PREDNISOLONE
     Dosage: 20 MG, QD, 1-0-0-0
     Dates: start: 201902, end: 201903
  12. PREDNISOLONE. [Concomitant]
     Active Substance: PREDNISOLONE
     Dosage: 15 MG
     Dates: start: 20190410
  13. PREDNISOLONE. [Concomitant]
     Active Substance: PREDNISOLONE
     Dosage: 10 UNK
     Dates: start: 20190513
  14. RIVAROXABAN [Suspect]
     Active Substance: RIVAROXABAN
     Dosage: ACTUALLY 10 MG
     Route: 048
  15. PROLIA [Concomitant]
     Active Substance: DENOSUMAB
     Indication: OSTEOPOROSIS
     Dosage: UNK
     Dates: start: 201901

REACTIONS (18)
  - Duodenal ulcer [Unknown]
  - Femur fracture [Unknown]
  - Cytomegalovirus infection [Unknown]
  - Cytomegalovirus gastroenteritis [Unknown]
  - Granulomatosis with polyangiitis [Unknown]
  - Thrombosis [Unknown]
  - Epistaxis [Unknown]
  - Peptic ulcer [Unknown]
  - Gastric ulcer [Unknown]
  - Cytomegalovirus colitis [Unknown]
  - Deep vein thrombosis [Unknown]
  - Duodenal ulcer [Unknown]
  - Oesophageal candidiasis [Unknown]
  - Embolism venous [Unknown]
  - Deep vein thrombosis [Unknown]
  - Gastrooesophageal reflux disease [Unknown]
  - Abnormal loss of weight [Unknown]
  - Microalbuminuria [Unknown]

NARRATIVE: CASE EVENT DATE: 201901
